FAERS Safety Report 6461825-4 (Version None)
Quarter: 2009Q4

REPORT INFORMATION
  Report Type: 
  Country: None (occurrence: None)
  Receive Date: 20091130
  Receipt Date: 20091124
  Transmission Date: 20100525
  Serious: Yes (Hospitalization)
  Sender: FDA-Public Use
  Company Number: HU-MERCK-0911USA04596

PATIENT
  Age: 36 Month
  Sex: Male

DRUGS (2)
  1. SINGULAIR [Suspect]
     Route: 048
  2. VENTOLIN [Concomitant]
     Route: 065

REACTIONS (4)
  - ASPHYXIA [None]
  - BRONCHITIS [None]
  - COUGH [None]
  - DYSPNOEA [None]
